FAERS Safety Report 4804815-7 (Version None)
Quarter: 2005Q4

REPORT INFORMATION
  Report Type: 
  Country: None (occurrence: None)
  Receive Date: 20051020
  Receipt Date: 20050928
  Transmission Date: 20060501
  Serious: Yes (Hospitalization)
  Sender: FDA-Public Use
  Company Number: PHBS2005JP14347

PATIENT
  Age: 67 Year
  Sex: Female

DRUGS (9)
  1. RIFAMPICIN [Suspect]
     Indication: MYCOBACTERIUM CHELONEI INFECTION
     Dosage: 450 MG/D
     Route: 048
  2. MEDROL [Suspect]
     Indication: SYSTEMIC SCLEROSIS
     Dosage: 10 MG/D
     Route: 048
  3. NEORAL [Suspect]
     Indication: NEPHROTIC SYNDROME
     Dosage: 50 MG/D
     Route: 048
  4. MINOCYCLINE [Concomitant]
     Indication: PARONYCHIA
  5. CLARITHROMYCIN [Concomitant]
     Indication: MYCOBACTERIUM CHELONEI INFECTION
     Dosage: 800 MG/D
  6. KANAMYCIN SULFATE [Concomitant]
     Indication: MYCOBACTERIUM CHELONEI INFECTION
     Dosage: 1800 MG/D
  7. ERYTHROMYCIN [Concomitant]
     Indication: MYCOBACTERIUM CHELONEI INFECTION
     Dosage: 1000 MG/D
  8. LEVOFLOXACIN [Concomitant]
     Indication: MYCOBACTERIUM CHELONEI INFECTION
     Dosage: 300 MG/D
  9. ISONIAZID [Concomitant]
     Indication: MYCOBACTERIUM CHELONEI INFECTION
     Dosage: 300 MG/D

REACTIONS (9)
  - CONDITION AGGRAVATED [None]
  - FINGER AMPUTATION [None]
  - INFLAMMATION [None]
  - INTESTINAL ULCER PERFORATION [None]
  - MYCOBACTERIUM CHELONEI INFECTION [None]
  - NODULE ON EXTREMITY [None]
  - OSTEOMYELITIS [None]
  - PARONYCHIA [None]
  - RASH [None]
